FAERS Safety Report 9347131 (Version 4)
Quarter: 2013Q4

REPORT INFORMATION
  Report Type: Spontaneous
  Country: US (occurrence: US)
  Receive Date: 20130613
  Receipt Date: 20131016
  Transmission Date: 20140711
  Serious: Yes (Hospitalization, Disabling, Other)
  Sender: FDA-Public Use
  Company Number: US-009507513-2009SP036873

PATIENT
  Sex: Female
  Weight: 68.4 kg

DRUGS (10)
  1. NUVARING [Suspect]
     Indication: OVARIAN CYST
     Dosage: UNK
     Dates: start: 20070521, end: 20071014
  2. NUVARING [Suspect]
     Indication: MENSTRUAL CYCLE MANAGEMENT
  3. NUVARING [Suspect]
     Indication: MENORRHAGIA
  4. IBUPROFEN [Concomitant]
     Indication: BACK PAIN
  5. LISINOPRIL [Concomitant]
     Indication: PRODUCT USED FOR UNKNOWN INDICATION
  6. Z-PAK [Concomitant]
     Indication: PRODUCT USED FOR UNKNOWN INDICATION
  7. ACIPHEX [Concomitant]
     Indication: PRODUCT USED FOR UNKNOWN INDICATION
  8. HYDROCODONE [Concomitant]
     Indication: PRODUCT USED FOR UNKNOWN INDICATION
  9. ANCEF [Concomitant]
     Indication: PRODUCT USED FOR UNKNOWN INDICATION
  10. MK-9314 [Concomitant]
     Indication: PRODUCT USED FOR UNKNOWN INDICATION
     Dates: start: 2007

REACTIONS (29)
  - Coagulopathy [Not Recovered/Not Resolved]
  - Respiratory failure [Unknown]
  - Coma [Recovered/Resolved]
  - Cervical dysplasia [Unknown]
  - Aneurysm [Unknown]
  - Syncope [Unknown]
  - Haemorrhagic stroke [Recovered/Resolved with Sequelae]
  - Intracranial venous sinus thrombosis [Unknown]
  - Thrombophlebitis [Unknown]
  - Vena cava thrombosis [Unknown]
  - Iron deficiency anaemia [Recovering/Resolving]
  - Leukocytosis [Unknown]
  - Dehydration [Unknown]
  - Nasopharyngitis [Unknown]
  - Haemangioma of liver [Unknown]
  - Inappropriate schedule of drug administration [Unknown]
  - Off label use [Unknown]
  - Weight decreased [Unknown]
  - Tonsillectomy [Unknown]
  - Hemianopia homonymous [Not Recovered/Not Resolved]
  - Thrombophlebitis [Unknown]
  - Fatigue [Unknown]
  - Balance disorder [Not Recovered/Not Resolved]
  - Deep vein thrombosis [Unknown]
  - Iron deficiency anaemia [Unknown]
  - Vena cava filter insertion [Unknown]
  - Cyst [Unknown]
  - Menopause [Unknown]
  - Migraine [Unknown]
